FAERS Safety Report 9734761 (Version 2)
Quarter: 2013Q4

REPORT INFORMATION
  Report Type: Spontaneous
  Country: FR (occurrence: FR)
  Receive Date: 20131206
  Receipt Date: 20131226
  Transmission Date: 20140711
  Serious: Yes (Hospitalization)
  Sender: FDA-Public Use
  Company Number: FR-JNJFOC-20131202480

PATIENT
  Age: 83 Year
  Sex: Female

DRUGS (3)
  1. REMINYL [Suspect]
     Indication: DEMENTIA ALZHEIMER^S TYPE
     Route: 048
     Dates: start: 2011, end: 201309
  2. LERCAN [Suspect]
     Indication: HYPERTENSION
     Route: 048
     Dates: start: 2011, end: 201309
  3. EBIXA [Suspect]
     Indication: DEMENTIA ALZHEIMER^S TYPE
     Route: 048
     Dates: start: 2011, end: 201309

REACTIONS (3)
  - Cardiac failure [Unknown]
  - Lung disorder [Unknown]
  - Hyponatraemia [Recovered/Resolved]
